FAERS Safety Report 5711582-1 (Version None)
Quarter: 2008Q2

REPORT INFORMATION
  Report Type: 
  Country: None (occurrence: None)
  Receive Date: 20080421
  Receipt Date: 20080416
  Transmission Date: 20081010
  Serious: Yes (Death, Hospitalization)
  Sender: FDA-Public Use
  Company Number: US-BRISTOL-MYERS SQUIBB COMPANY-14154249

PATIENT
  Age: 32 Year
  Sex: Male
  Weight: 82 kg

DRUGS (3)
  1. ERBITUX [Suspect]
     Indication: SQUAMOUS CELL CARCINOMA
     Route: 042
     Dates: start: 20080402
  2. FENTANYL CITRATE [Concomitant]
  3. METHADONE HCL [Concomitant]

REACTIONS (4)
  - ANOXIC ENCEPHALOPATHY [None]
  - DEATH [None]
  - DYSPNOEA [None]
  - SYNCOPE [None]
